FAERS Safety Report 18904458 (Version 1)
Quarter: 2021Q1

REPORT INFORMATION
  Report Type: Spontaneous
  Country: US (occurrence: US)
  Receive Date: 20210216
  Receipt Date: 20210216
  Transmission Date: 20210420
  Serious: No
  Sender: FDA-Public Use
  Company Number: None

PATIENT
  Age: 58 Year
  Sex: Female

DRUGS (19)
  1. TOPROL XL [Concomitant]
     Active Substance: METOPROLOL SUCCINATE
  2. NITROGLYCERIN TRANSDERMAL [Concomitant]
  3. CLARITIN [Concomitant]
     Active Substance: LORATADINE
  4. CYMBALTA [Concomitant]
     Active Substance: DULOXETINE HYDROCHLORIDE
  5. XANAX [Concomitant]
     Active Substance: ALPRAZOLAM
  6. SINEMET [Concomitant]
     Active Substance: CARBIDOPA\LEVODOPA
  7. REQUIP [Concomitant]
     Active Substance: ROPINIROLE HYDROCHLORIDE
  8. LISINOPRIL. [Concomitant]
     Active Substance: LISINOPRIL
  9. NEURONTIN [Concomitant]
     Active Substance: GABAPENTIN
  10. FONDAPARINUX 10MG/0.8ML PFS [Suspect]
     Active Substance: FONDAPARINUX
     Indication: LUNG DISORDER
     Route: 058
  11. POTASSIUM CHLORIDE ER [Concomitant]
     Active Substance: POTASSIUM CHLORIDE
  12. VALTREX [Concomitant]
     Active Substance: VALACYCLOVIR HYDROCHLORIDE
  13. WELLBUTRIN [Concomitant]
     Active Substance: BUPROPION HYDROCHLORIDE
  14. COLESTID [Concomitant]
     Active Substance: COLESTIPOL HYDROCHLORIDE
  15. LASIX [Concomitant]
     Active Substance: FUROSEMIDE
  16. TOPAMAX [Concomitant]
     Active Substance: TOPIRAMATE
  17. B12 FOLATE [Concomitant]
  18. ZANAFLEX [Concomitant]
     Active Substance: TIZANIDINE HYDROCHLORIDE
  19. ABILIFY [Concomitant]
     Active Substance: ARIPIPRAZOLE

REACTIONS (1)
  - Myocardial infarction [None]
